FAERS Safety Report 20937563 (Version 1)
Quarter: 2022Q2

REPORT INFORMATION
  Report Type: Spontaneous
  Country: TR (occurrence: TR)
  Receive Date: 20220609
  Receipt Date: 20220609
  Transmission Date: 20220720
  Serious: Yes (Hospitalization, Other)
  Sender: FDA-Public Use
  Company Number: TR-PURACAP-TR-2022EPCLIT00795

PATIENT
  Age: 41 Year
  Sex: Male

DRUGS (1)
  1. NAPROXEN SODIUM [Suspect]
     Active Substance: NAPROXEN SODIUM
     Indication: Headache
     Route: 065

REACTIONS (2)
  - Angioedema [Recovered/Resolved]
  - Fixed eruption [Recovered/Resolved]
